FAERS Safety Report 8063731-0 (Version None)
Quarter: 2012Q1

REPORT INFORMATION
  Report Type: 
  Country: None (occurrence: None)
  Receive Date: 20120123
  Receipt Date: 20120117
  Transmission Date: 20120608
  Serious: Yes (Other)
  Sender: FDA-Public Use
  Company Number: PHHY2012HR004387

PATIENT
  Age: 57 Year
  Sex: Female

DRUGS (3)
  1. MIRTAZAPINE [Suspect]
     Indication: DEPRESSION
     Dosage: 30 MG, QD
     Route: 048
     Dates: start: 20070101
  2. CITALON [Suspect]
     Indication: DEPRESSION
     Dosage: 20 MG, QD
     Route: 048
     Dates: start: 20070101
  3. ALPRAZOLAM [Suspect]
     Indication: DEPRESSION
     Dosage: 1 MG, QD
     Route: 048
     Dates: start: 20070101

REACTIONS (2)
  - HYPERTRIGLYCERIDAEMIA [None]
  - BLOOD CHOLESTEROL INCREASED [None]
